FAERS Safety Report 8414168-3 (Version None)
Quarter: 2012Q2

REPORT INFORMATION
  Report Type: 
  Country: None (occurrence: None)
  Receive Date: 20120605
  Receipt Date: 20120528
  Transmission Date: 20120825
  Serious: Yes (Hospitalization)
  Sender: FDA-Public Use
  Company Number: AU-ABBOTT-12P-008-0920703-00

PATIENT
  Sex: Female

DRUGS (2)
  1. KALETRA [Suspect]
     Indication: HIV INFECTION
     Dates: start: 20100601
  2. TRUVADA [Suspect]
     Indication: PRODUCT USED FOR UNKNOWN INDICATION

REACTIONS (6)
  - INTESTINAL PROLAPSE [None]
  - GASTRIC DISORDER [None]
  - PNEUMOTHORAX [None]
  - PNEUMONIA ASPIRATION [None]
  - DIARRHOEA [None]
  - IMPAIRED GASTRIC EMPTYING [None]
